FAERS Safety Report 13855198 (Version 1)
Quarter: 2017Q3

REPORT INFORMATION
  Report Type: Spontaneous
  Country: PL (occurrence: PL)
  Receive Date: 20170810
  Receipt Date: 20170810
  Transmission Date: 20171127
  Serious: Yes (Other)
  Sender: FDA-Public Use
  Company Number: PL-CORDEN PHARMA LATINA S.P.A.-PL-2017COR000172

PATIENT
  Age: 58 Year
  Sex: Male

DRUGS (31)
  1. CISPLATIN. [Suspect]
     Active Substance: CISPLATIN
     Indication: HODGKIN^S DISEASE
  2. ADRIAMYCIN [Suspect]
     Active Substance: DOXORUBICIN HYDROCHLORIDE
     Dosage: CYCLE 4
  3. BLEOMYCIN [Suspect]
     Active Substance: BLEOMYCIN SULFATE
     Dosage: CYCLE 4
  4. BLEOMYCIN [Suspect]
     Active Substance: BLEOMYCIN SULFATE
     Dosage: CYCLE 5
  5. DACARBAZINE. [Suspect]
     Active Substance: DACARBAZINE
     Indication: HODGKIN^S DISEASE
     Dosage: CYCLE 1
  6. DACARBAZINE. [Suspect]
     Active Substance: DACARBAZINE
     Dosage: CYCLE 5
  7. GEMCITABINE [Suspect]
     Active Substance: GEMCITABINE\GEMCITABINE HYDROCHLORIDE
     Indication: HODGKIN^S DISEASE
  8. METHYLPREDNISOLONE. [Suspect]
     Active Substance: METHYLPREDNISOLONE
     Indication: HODGKIN^S DISEASE
  9. CYTARABINE. [Suspect]
     Active Substance: CYTARABINE
     Indication: HODGKIN^S DISEASE
  10. VINBLASTINE [Suspect]
     Active Substance: VINBLASTINE
     Dosage: CYCLE 5
  11. VINBLASTINE [Suspect]
     Active Substance: VINBLASTINE
     Dosage: CYCLE 6
  12. ETOPOSIDE. [Suspect]
     Active Substance: ETOPOSIDE
     Indication: HODGKIN^S DISEASE
  13. ADRIAMYCIN [Suspect]
     Active Substance: DOXORUBICIN HYDROCHLORIDE
     Dosage: CYCLE 2
  14. BLEOMYCIN [Suspect]
     Active Substance: BLEOMYCIN SULFATE
     Dosage: CYCLE 6
  15. DACARBAZINE. [Suspect]
     Active Substance: DACARBAZINE
     Dosage: CYCLE 2
  16. BLEOMYCIN [Suspect]
     Active Substance: BLEOMYCIN SULFATE
     Indication: HODGKIN^S DISEASE
     Dosage: CYCLE 1
  17. BLEOMYCIN [Suspect]
     Active Substance: BLEOMYCIN SULFATE
     Dosage: CYCLE 3
  18. VINBLASTINE [Suspect]
     Active Substance: VINBLASTINE
     Indication: HODGKIN^S DISEASE
     Dosage: CYCLE 1
  19. EPIRUBICIN [Suspect]
     Active Substance: EPIRUBICIN
     Indication: HODGKIN^S DISEASE
     Dosage: UNK
  20. ADRIAMYCIN [Suspect]
     Active Substance: DOXORUBICIN HYDROCHLORIDE
     Dosage: CYCLE 3
  21. ADRIAMYCIN [Suspect]
     Active Substance: DOXORUBICIN HYDROCHLORIDE
     Dosage: CYCLE 5
  22. ADRIAMYCIN [Suspect]
     Active Substance: DOXORUBICIN HYDROCHLORIDE
     Dosage: CYCLE 6
  23. IFOSFAMIDE. [Suspect]
     Active Substance: IFOSFAMIDE
     Indication: HODGKIN^S DISEASE
  24. ADRIAMYCIN [Suspect]
     Active Substance: DOXORUBICIN HYDROCHLORIDE
     Indication: HODGKIN^S DISEASE
     Dosage: CYCLE 1
  25. VINBLASTINE [Suspect]
     Active Substance: VINBLASTINE
     Dosage: CYCLE 2
  26. VINBLASTINE [Suspect]
     Active Substance: VINBLASTINE
     Dosage: CYCLE 3
  27. VINBLASTINE [Suspect]
     Active Substance: VINBLASTINE
     Dosage: CYCLE 4
  28. DACARBAZINE. [Suspect]
     Active Substance: DACARBAZINE
     Dosage: CYCLE 3
  29. DACARBAZINE. [Suspect]
     Active Substance: DACARBAZINE
     Dosage: CYCLE 4
  30. BLEOMYCIN [Suspect]
     Active Substance: BLEOMYCIN SULFATE
     Dosage: CYCLE 2
  31. DACARBAZINE. [Suspect]
     Active Substance: DACARBAZINE
     Dosage: CYCLE 6

REACTIONS (3)
  - Aspergillus infection [Recovering/Resolving]
  - Febrile neutropenia [Recovering/Resolving]
  - Torulopsis infection [Recovering/Resolving]
